FAERS Safety Report 11603375 (Version 2)
Quarter: 2015Q4

REPORT INFORMATION
  Report Type: Spontaneous
  Country: US (occurrence: US)
  Receive Date: 20151007
  Receipt Date: 20151015
  Transmission Date: 20160304
  Serious: Yes (Other)
  Sender: FDA-Public Use
  Company Number: US-AUROBINDO-AUR-APL-2015-08734

PATIENT
  Age: 29 Year
  Sex: Male

DRUGS (1)
  1. LEVOFLOXACIN. [Suspect]
     Active Substance: LEVOFLOXACIN
     Indication: INFECTION
     Route: 065

REACTIONS (6)
  - Condition aggravated [Recovered/Resolved]
  - Acid fast bacilli infection [Recovered/Resolved]
  - Drug resistance [Recovered/Resolved]
  - Bronchiectasis [Recovered/Resolved]
  - Tuberculosis [Recovered/Resolved]
  - Lung infiltration [Recovered/Resolved]
